FAERS Safety Report 10039845 (Version 4)
Quarter: 2014Q2

REPORT INFORMATION
  Report Type: Spontaneous
  Country: JP (occurrence: JP)
  Receive Date: 20140326
  Receipt Date: 20140414
  Transmission Date: 20141212
  Serious: Yes (Other)
  Sender: FDA-Public Use
  Company Number: JP-JNJFOC-20140313433

PATIENT
  Age: 82 Year
  Sex: Male

DRUGS (7)
  1. TRAMACET [Suspect]
     Indication: PAIN
     Dosage: 3 DOSES ONCE PER DAY
     Route: 048
     Dates: start: 20140225
  2. VOGLIBOSE [Concomitant]
     Route: 048
  3. DEPAS [Concomitant]
     Route: 048
  4. CELECOX [Concomitant]
     Route: 048
  5. PROCYLIN [Concomitant]
     Route: 048
  6. MERISLON [Concomitant]
     Route: 048
  7. ALLEGRA [Concomitant]
     Route: 048

REACTIONS (2)
  - Dementia [Unknown]
  - Amnesia [Unknown]
